FAERS Safety Report 22965408 (Version 3)
Quarter: 2025Q4

REPORT INFORMATION
  Report Type: Report from Study
  Country: US (occurrence: US)
  Receive Date: 20230921
  Receipt Date: 20251118
  Transmission Date: 20260117
  Serious: Yes (Death, Other)
  Sender: TAKEDA
  Company Number: US-TAKEDA-2023TUS044232

PATIENT
  Age: 21 Year
  Sex: Male

DRUGS (2)
  1. IDURSULFASE [Suspect]
     Active Substance: IDURSULFASE
     Indication: Mucopolysaccharidosis II
     Dosage: 8 DOSAGE FORM, 1/WEEK
     Dates: start: 20061009
  2. IDURSULFASE [Suspect]
     Active Substance: IDURSULFASE
     Dosage: UNK UNK, 1/WEEK

REACTIONS (3)
  - Mucopolysaccharidosis II [Fatal]
  - Dementia [Not Recovered/Not Resolved]
  - Disease progression [Not Recovered/Not Resolved]
